FAERS Safety Report 8308204-2 (Version None)
Quarter: 2012Q2

REPORT INFORMATION
  Report Type: 
  Country: None (occurrence: None)
  Receive Date: 20120424
  Receipt Date: 20120417
  Transmission Date: 20120825
  Serious: Yes (Hospitalization, Disabling)
  Sender: FDA-Public Use
  Company Number: FR-ROCHE-1057154

PATIENT
  Age: 40 Year
  Sex: Female
  Weight: 46 kg

DRUGS (9)
  1. TERCIAN [Concomitant]
     Dosage: AT 5 DROPS DAILY
  2. CLONAZEPAM [Suspect]
     Dosage: 1/2 DOSE DAILY DURING 1 MONTH.
     Dates: start: 20110101
  3. OXAZEPAM [Concomitant]
     Indication: ANXIETY
  4. CLONAZEPAM [Suspect]
     Indication: ARTHRALGIA
     Route: 048
     Dates: start: 20000101
  5. KETOPROFEN [Concomitant]
  6. ABILIFY [Concomitant]
     Indication: PERSONALITY DISORDER
     Dates: start: 20110101, end: 20120101
  7. OXAZEPAM [Concomitant]
     Indication: INSOMNIA
     Dosage: 2 TABLETS DAILY
     Dates: start: 20090101
  8. ALPRIM [Concomitant]
  9. ESCITALOPRAM [Concomitant]
     Indication: DEPRESSION
     Dates: start: 20090101

REACTIONS (2)
  - WITHDRAWAL SYNDROME [None]
  - POLYNEUROPATHY [None]
